FAERS Safety Report 5996824-X (Version None)
Quarter: 2008Q4

REPORT INFORMATION
  Report Type: 
  Country: None (occurrence: None)
  Receive Date: 20081210
  Receipt Date: 20081202
  Transmission Date: 20090506
  Serious: Yes (Other)
  Sender: FDA-Public Use
  Company Number: CHPA2008US21559

PATIENT
  Sex: Male

DRUGS (1)
  1. MAALOX ANTACID/ANTIGAS RS LIQ SMTHCHERRY (NCH)(MAGNESIUM HYDROXIDE, AL [Suspect]
     Indication: BOWEL MOVEMENT IRREGULARITY
     Dosage: ORAL
     Route: 048

REACTIONS (1)
  - GALLBLADDER OPERATION [None]
